FAERS Safety Report 6611024-8 (Version None)
Quarter: 2010Q1

REPORT INFORMATION
  Report Type: 
  Country: None (occurrence: None)
  Receive Date: 20100222
  Receipt Date: 20100211
  Transmission Date: 20100710
  Serious: Yes (Hospitalization, Other)
  Sender: FDA-Public Use
  Company Number: 230666J08CAN

PATIENT
  Age: 42 Year
  Sex: Female

DRUGS (8)
  1. REBIF [Suspect]
     Indication: RELAPSING-REMITTING MULTIPLE SCLEROSIS
     Dosage: 44 MCG, 3 IN 1 WEEKS; 22 MCG, 3 IN 1 WEEKS
     Dates: start: 20001020, end: 20090301
  2. REBIF [Suspect]
     Indication: RELAPSING-REMITTING MULTIPLE SCLEROSIS
     Dosage: 44 MCG, 3 IN 1 WEEKS; 22 MCG, 3 IN 1 WEEKS
     Dates: start: 20090301
  3. TYLENOL XS (COTYLENOL) [Concomitant]
  4. WELLBUTRIN [Concomitant]
  5. VITAMIN E [Concomitant]
  6. VITAMIN D [Concomitant]
  7. FISH OIL (FISH OIL) [Concomitant]
  8. GARLIC (ALLIUM SATIVUM) [Concomitant]

REACTIONS (8)
  - ABASIA [None]
  - DEVICE INEFFECTIVE [None]
  - FEELING COLD [None]
  - HEADACHE [None]
  - INFLUENZA LIKE ILLNESS [None]
  - TREMOR [None]
  - VISION BLURRED [None]
  - VISUAL IMPAIRMENT [None]
